FAERS Safety Report 15826286 (Version 1)
Quarter: 2019Q1

REPORT INFORMATION
  Report Type: Spontaneous
  Country: US (occurrence: US)
  Receive Date: 20190115
  Receipt Date: 20190115
  Transmission Date: 20190417
  Serious: Yes (Other)
  Sender: FDA-Public Use
  Company Number: US-GILEAD-2019-0384751

PATIENT
  Age: 71 Year
  Sex: Female
  Weight: 66.2 kg

DRUGS (1)
  1. YESCARTA [Suspect]
     Active Substance: AXICABTAGENE CILOLEUCEL
     Indication: DIFFUSE LARGE B-CELL LYMPHOMA
     Dosage: UNK
     Route: 065
     Dates: start: 20181025, end: 20181025

REACTIONS (2)
  - Neurotoxicity [Unknown]
  - Headache [Unknown]

NARRATIVE: CASE EVENT DATE: 20181106
